FAERS Safety Report 6413221-3 (Version None)
Quarter: 2009Q4

REPORT INFORMATION
  Report Type: 
  Country: None (occurrence: None)
  Receive Date: 20091026
  Receipt Date: 20091015
  Transmission Date: 20100525
  Serious: Yes (Hospitalization)
  Sender: FDA-Public Use
  Company Number: PHHO2003DE08555

PATIENT
  Sex: Female
  Weight: 90.1 kg

DRUGS (3)
  1. ZOLEDRONATE T29581+SOLINF [Suspect]
     Indication: METASTASES TO BONE
     Dosage: 4 MG, EVERY 4 WEEKS
     Route: 042
     Dates: start: 20021002
  2. PREDNISONE [Suspect]
  3. ALKERAN [Concomitant]

REACTIONS (12)
  - ARTHRALGIA [None]
  - BACK PAIN [None]
  - FALL [None]
  - INTERVERTEBRAL DISC PROTRUSION [None]
  - PAIN [None]
  - PARESIS [None]
  - PATHOLOGICAL FRACTURE [None]
  - SEQUESTRECTOMY [None]
  - SPINAL DISORDER [None]
  - SPINAL LAMINECTOMY [None]
  - SPINAL OPERATION [None]
  - TENDON RUPTURE [None]
